FAERS Safety Report 8484558-1 (Version None)
Quarter: 2012Q3

REPORT INFORMATION
  Report Type: 
  Country: None (occurrence: None)
  Receive Date: 20120703
  Receipt Date: 20120627
  Transmission Date: 20120928
  Serious: Yes (Death, Other)
  Sender: FDA-Public Use
  Company Number: HK-PFIZER INC-2012155377

PATIENT

DRUGS (1)
  1. CRIZOTINIB [Suspect]
     Dosage: UNK

REACTIONS (3)
  - DISEASE PROGRESSION [None]
  - ASCITES [None]
  - NEOPLASM MALIGNANT [None]
